FAERS Safety Report 9807101 (Version 2)
Quarter: 2014Q1

REPORT INFORMATION
  Report Type: Report from Study
  Country: US (occurrence: US)
  Receive Date: 20140110
  Receipt Date: 20140110
  Transmission Date: 20141002
  Serious: Yes (Other)
  Sender: FDA-Public Use
  Company Number: US-ROCHE-1314551

PATIENT
  Age: 77 Year
  Sex: Female

DRUGS (2)
  1. LUCENTIS [Suspect]
     Indication: HAEMORRHAGE
     Dosage: RIGHT EYE
     Route: 065
  2. LUCENTIS [Suspect]
     Indication: RETINAL TEAR

REACTIONS (3)
  - Cerebrovascular accident [Recovering/Resolving]
  - Ocular discomfort [Recovering/Resolving]
  - Eye pain [Recovering/Resolving]
